FAERS Safety Report 24318257 (Version 1)
Quarter: 2024Q3

REPORT INFORMATION
  Report Type: Spontaneous
  Country: JP (occurrence: None)
  Receive Date: 20240913
  Receipt Date: 20240913
  Transmission Date: 20241017
  Serious: Yes (Death)
  Sender: ASTRAZENECA
  Company Number: 2024A207931

PATIENT
  Age: 72 Year
  Sex: Male

DRUGS (7)
  1. IMFINZI [Suspect]
     Active Substance: DURVALUMAB
     Indication: Small cell lung cancer
     Dosage: DOSE UNKNOWN
     Route: 041
  2. CARBOPLATIN [Concomitant]
     Active Substance: CARBOPLATIN
     Indication: Small cell lung cancer
     Dosage: ACU 3.5
     Route: 065
  3. CARBOPLATIN [Concomitant]
     Active Substance: CARBOPLATIN
     Indication: Small cell lung cancer
     Dosage: ACU5
     Route: 065
  4. ETOPOSIDE [Concomitant]
     Active Substance: ETOPOSIDE
     Indication: Small cell lung cancer
     Dosage: ON DAYS 1, 2 AND 3 OF EACH CYCLES
     Route: 065
  5. ETOPOSIDE [Concomitant]
     Active Substance: ETOPOSIDE
     Indication: Small cell lung cancer
     Dosage: ON DAYS 1, 2 AND 3 OF EACH CYCLES
     Route: 065
  6. ENTECAVIR HYDRATE [Concomitant]
     Indication: Hepatitis B
     Dosage: DOSE UNKNOWN
     Route: 065
  7. OTHER AGENTS RELATING TO BLOOD AND BODY FLUIDES [Concomitant]
     Indication: Platelet count decreased
     Dosage: DOSE UNKNOWN
     Route: 065

REACTIONS (2)
  - General physical health deterioration [Fatal]
  - Off label use [Unknown]
